FAERS Safety Report 6923885-3 (Version None)
Quarter: 2010Q3

REPORT INFORMATION
  Report Type: 
  Country: None (occurrence: None)
  Receive Date: 20100813
  Receipt Date: 20100408
  Transmission Date: 20110219
  Serious: No
  Sender: FDA-Public Use
  Company Number: US-BRISTOL-MYERS SQUIBB COMPANY-15054117

PATIENT
  Age: 18 Year
  Sex: Female
  Weight: 50 kg

DRUGS (2)
  1. REYATAZ [Suspect]
     Indication: HIV TEST POSITIVE
     Dates: start: 20100201, end: 20100101
  2. IRON [Concomitant]

REACTIONS (1)
  - ABDOMINAL PAIN [None]
